FAERS Safety Report 12907126 (Version 1)
Quarter: 2016Q4

REPORT INFORMATION
  Report Type: Spontaneous
  Country: US (occurrence: US)
  Receive Date: 20161103
  Receipt Date: 20161103
  Transmission Date: 20170207
  Serious: Yes (Other)
  Sender: FDA-Public Use
  Company Number: US-ARBOR PHARMACEUTICALS, LLC-US-2016ARB002292

PATIENT

DRUGS (2)
  1. EVEKEO [Suspect]
     Active Substance: AMPHETAMINE SULFATE
     Indication: NARCOLEPSY
     Dosage: UNK
  2. XYREM [Suspect]
     Active Substance: SODIUM OXYBATE
     Indication: NARCOLEPSY
     Dosage: 2.75 MG 1-2X/NIGHT

REACTIONS (8)
  - Drug interaction [Unknown]
  - Headache [Unknown]
  - Diplopia [Unknown]
  - Photophobia [Unknown]
  - Drug effect decreased [Unknown]
  - Abnormal sensation in eye [Unknown]
  - Dry eye [Unknown]
  - Vision blurred [Unknown]
